FAERS Safety Report 8518583 (Version 4)
Quarter: 2014Q2

REPORT INFORMATION
  Report Type: Spontaneous
  Country: US (occurrence: US)
  Receive Date: 20120417
  Receipt Date: 20140422
  Transmission Date: 20141212
  Serious: No
  Sender: FDA-Public Use
  Company Number: US-ASTRAZENECA-2011SE32037

PATIENT
  Age: 70 Year
  Sex: Female
  Weight: 29 kg

DRUGS (7)
  1. NEXIUM [Suspect]
     Indication: GASTROOESOPHAGEAL REFLUX DISEASE
     Route: 048
  2. VIMOVO [Suspect]
     Route: 048
  3. ALPRAZOLAM [Concomitant]
  4. PAXIL CR [Concomitant]
     Indication: GASTRIC DISORDER
  5. SIMVASTATIN [Concomitant]
  6. FERROSOL [Concomitant]
     Indication: MINERAL SUPPLEMENTATION
  7. PAIN MEDICATION [Concomitant]
     Indication: ARTHRALGIA

REACTIONS (12)
  - Facial pain [Unknown]
  - Musculoskeletal pain [Unknown]
  - Neck pain [Unknown]
  - Irritability [Unknown]
  - Mood altered [Unknown]
  - Arthritis [Unknown]
  - Mental impairment [Unknown]
  - Dyspepsia [Unknown]
  - Headache [Unknown]
  - Anxiety [Unknown]
  - Intentional product misuse [Unknown]
  - Drug dose omission [Unknown]
